FAERS Safety Report 17096538 (Version 2)
Quarter: 2020Q1

REPORT INFORMATION
  Report Type: Spontaneous
  Country: IT (occurrence: IT)
  Receive Date: 20191202
  Receipt Date: 20200221
  Transmission Date: 20200409
  Serious: Yes (Hospitalization)
  Sender: FDA-Public Use
  Company Number: IT-ALLERGAN-1948809US

PATIENT
  Sex: Female

DRUGS (3)
  1. LITHIUM CARBONATE. [Concomitant]
     Active Substance: LITHIUM CARBONATE
  2. CARIPRAZINE HCL - BP [Suspect]
     Active Substance: CARIPRAZINE HYDROCHLORIDE
     Indication: MENTAL DISORDER
     Dosage: 1 DF
     Route: 048
     Dates: start: 20191018, end: 20191026
  3. LEXOTAN [Concomitant]
     Active Substance: BROMAZEPAM

REACTIONS (3)
  - Dysarthria [Recovering/Resolving]
  - Dysphagia [Recovering/Resolving]
  - Extrapyramidal disorder [Recovering/Resolving]

NARRATIVE: CASE EVENT DATE: 20191026
